FAERS Safety Report 4678109-7 (Version None)
Quarter: 2005Q2

REPORT INFORMATION
  Report Type: 
  Country: None (occurrence: None)
  Receive Date: 20050527
  Receipt Date: 20050520
  Transmission Date: 20051028
  Serious: Yes (Hospitalization)
  Sender: FDA-Public Use
  Company Number: TPA2003A00252

PATIENT
  Age: 57 Year
  Sex: Male
  Weight: 83.0083 kg

DRUGS (13)
  1. PIOGLITAZONE HCL [Suspect]
     Indication: DIABETES MELLITUS NON-INSULIN-DEPENDENT
     Dosage: PER ORAL
     Route: 048
     Dates: start: 20020319, end: 20020417
  2. FELODIPINE [Concomitant]
  3. LOSARTAN (LOSARTAN) [Concomitant]
  4. CLONIDINE [Concomitant]
  5. ATENOLOL [Concomitant]
  6. LISINOPRIL [Concomitant]
  7. LASIX [Concomitant]
  8. METOPROLOL TARTRATE [Concomitant]
  9. INSULIN 500 (INSULIN) [Concomitant]
  10. GEMFIBROZIL [Concomitant]
  11. SIMVASTATIN [Concomitant]
  12. RABEPRAZOLE SODIUM [Concomitant]
  13. TRAZODONE HCL [Concomitant]

REACTIONS (6)
  - CHRONIC OBSTRUCTIVE PULMONARY DISEASE [None]
  - DECREASED APPETITE [None]
  - DILATATION VENTRICULAR [None]
  - HYPOGLYCAEMIA [None]
  - MYOCARDIAL ISCHAEMIA [None]
  - PULMONARY OEDEMA [None]
